FAERS Safety Report 16359937 (Version 2)
Quarter: 2019Q2

REPORT INFORMATION
  Report Type: Spontaneous
  Country: US (occurrence: US)
  Receive Date: 20190528
  Receipt Date: 20190531
  Transmission Date: 20190711
  Serious: Yes (Hospitalization)
  Sender: FDA-Public Use
  Company Number: US-ASTRAZENECA-2019SE78313

PATIENT
  Sex: Female
  Weight: 81.6 kg

DRUGS (2)
  1. TUDORZA PRESSAIR [Suspect]
     Active Substance: ACLIDINIUM BROMIDE
     Indication: CHRONIC OBSTRUCTIVE PULMONARY DISEASE
     Route: 055
     Dates: start: 201905
  2. TUDORZA PRESSAIR [Suspect]
     Active Substance: ACLIDINIUM BROMIDE
     Indication: EMPHYSEMA
     Route: 055
     Dates: start: 201905

REACTIONS (7)
  - Dyspnoea [Unknown]
  - Off label use [Unknown]
  - Product dose omission [Not Recovered/Not Resolved]
  - Panic attack [Unknown]
  - Wrong technique in device usage process [Unknown]
  - Fatigue [Unknown]
  - Frustration tolerance decreased [Unknown]
